FAERS Safety Report 7707055-7 (Version None)
Quarter: 2011Q3

REPORT INFORMATION
  Report Type: 
  Country: None (occurrence: None)
  Receive Date: 20110824
  Receipt Date: 20110818
  Transmission Date: 20111222
  Serious: Yes (Hospitalization, Other)
  Sender: FDA-Public Use
  Company Number: JP-BRISTOL-MYERS SQUIBB COMPANY-15769961

PATIENT
  Age: 81 Year
  Sex: Male
  Weight: 63 kg

DRUGS (8)
  1. SPRYCEL [Suspect]
     Indication: CHRONIC MYELOID LEUKAEMIA
     Route: 048
     Dates: start: 20110325, end: 20110328
  2. CANDESARTAN CILEXETIL [Concomitant]
     Route: 048
  3. TICLOPIDINE HCL [Concomitant]
     Route: 048
  4. TRICHLORMETHIAZIDE [Concomitant]
     Route: 048
  5. NORVASC [Concomitant]
     Route: 048
  6. ALLOPURINOL [Concomitant]
     Route: 048
  7. ASPIRIN [Concomitant]
     Route: 048
  8. LASIX [Concomitant]
     Route: 048

REACTIONS (2)
  - RESPIRATORY FAILURE [None]
  - PULMONARY OEDEMA [None]
